FAERS Safety Report 22876590 (Version 2)
Quarter: 2023Q4

REPORT INFORMATION
  Report Type: Spontaneous
  Country: DE (occurrence: DE)
  Receive Date: 20230829
  Receipt Date: 20231116
  Transmission Date: 20240110
  Serious: Yes (Other)
  Sender: FDA-Public Use
  Company Number: DE-ARISTO PHARMA-DICL+OMEP202308151

PATIENT
  Age: 59 Year
  Sex: Male
  Weight: 76 kg

DRUGS (2)
  1. MESALAMINE [Suspect]
     Active Substance: MESALAMINE
     Indication: Colitis ulcerative
     Dosage: USAGE STARTED- APPROX. 1/2 YEAR AGO
     Route: 048
     Dates: start: 2023
  2. DICLOFENAC SODIUM\OMEPRAZOLE [Suspect]
     Active Substance: DICLOFENAC SODIUM\OMEPRAZOLE
     Indication: Prophylaxis against gastrointestinal ulcer
     Dosage: HARTKAPSELN, 1-TIME DAILY 1
     Route: 065
     Dates: start: 20230810, end: 20230813

REACTIONS (4)
  - Intestinal obstruction [Recovering/Resolving]
  - Nausea [Recovering/Resolving]
  - Vomiting [Recovering/Resolving]
  - Pain [Recovering/Resolving]

NARRATIVE: CASE EVENT DATE: 20230801
